FAERS Safety Report 16957357 (Version 3)
Quarter: 2019Q4

REPORT INFORMATION
  Report Type: Spontaneous
  Country: AT (occurrence: AT)
  Receive Date: 20191024
  Receipt Date: 20191107
  Transmission Date: 20200122
  Serious: Yes (Other)
  Sender: FDA-Public Use
  Company Number: DE-ASTRAZENECA-2019SF49606

PATIENT
  Age: 50 Year
  Sex: Female

DRUGS (1)
  1. SEROQUEL XR [Suspect]
     Active Substance: QUETIAPINE FUMARATE
     Indication: SLEEP DISORDER
     Dosage: 100.0MG UNKNOWN
     Route: 048

REACTIONS (4)
  - Memory impairment [Unknown]
  - Product use in unapproved indication [Unknown]
  - Off label use [Unknown]
  - Wrong technique in product usage process [Unknown]
